FAERS Safety Report 6674465-9 (Version None)
Quarter: 2010Q2

REPORT INFORMATION
  Report Type: 
  Country: None (occurrence: None)
  Receive Date: 20100409
  Receipt Date: 20100405
  Transmission Date: 20101027
  Serious: Yes (Death, Other)
  Sender: FDA-Public Use
  Company Number: PHHY2010US21051

PATIENT
  Age: 4 Year
  Sex: Male

DRUGS (9)
  1. CYCLOSPORINE [Suspect]
     Indication: EXTRANODAL NK/T-CELL LYMPHOMA, NASAL TYPE
  2. PREDNISOLONE [Suspect]
     Indication: EXTRANODAL NK/T-CELL LYMPHOMA, NASAL TYPE
     Dosage: 60 MG/M^2/DAY
  3. VINCRISTINE [Concomitant]
     Indication: EXTRANODAL NK/T-CELL LYMPHOMA, NASAL TYPE
  4. PREDNISONE TAB [Concomitant]
     Indication: EXTRANODAL NK/T-CELL LYMPHOMA, NASAL TYPE
  5. DAUNORUBICIN HCL [Concomitant]
     Indication: EXTRANODAL NK/T-CELL LYMPHOMA, NASAL TYPE
  6. ELSPAR [Concomitant]
     Indication: EXTRANODAL NK/T-CELL LYMPHOMA, NASAL TYPE
  7. CYTOXAN [Concomitant]
     Indication: EXTRANODAL NK/T-CELL LYMPHOMA, NASAL TYPE
  8. DOXORUBICIN HCL [Concomitant]
     Indication: EXTRANODAL NK/T-CELL LYMPHOMA, NASAL TYPE
  9. MERCAPTOPURINE [Concomitant]
     Indication: EXTRANODAL NK/T-CELL LYMPHOMA, NASAL TYPE

REACTIONS (6)
  - CELLULITIS [None]
  - CONVULSION [None]
  - GASTROINTESTINAL HAEMORRHAGE [None]
  - PANCREATITIS [None]
  - PSEUDOMONAL SEPSIS [None]
  - SWELLING FACE [None]
